FAERS Safety Report 7564351-4 (Version None)
Quarter: 2011Q2

REPORT INFORMATION
  Report Type: 
  Country: None (occurrence: None)
  Receive Date: 20110622
  Receipt Date: 20110609
  Transmission Date: 20111010
  Serious: Yes (Other)
  Sender: FDA-Public Use
  Company Number: PHHY2011NL40434

PATIENT
  Sex: Male

DRUGS (11)
  1. ACENOCOUMAROL [Concomitant]
  2. METOPROLOL TARTRATE [Concomitant]
     Dosage: 100 MG, QD
  3. PANTOPRAZOLE [Concomitant]
     Dosage: 40 MG, QD
  4. SIMVASTATIN [Concomitant]
     Dosage: 20 MG, QD
  5. AMIODARONE HCL [Concomitant]
     Dosage: 100 MG, QD
  6. BICALUTAMIDE [Concomitant]
     Dosage: 50 MG, QD
  7. LISINOPRIL [Concomitant]
     Dosage: 2 MG, QD
  8. ZOMETA [Suspect]
     Indication: PROSTATE CANCER METASTATIC
     Dosage: 4 MG/5 ML ONCE PER 28 DAYS
     Dates: start: 20110210
  9. ZOMETA [Suspect]
     Dosage: 4 MG/5 ML ONCE PER 28 DAYS
     Dates: start: 20110414
  10. ZOMETA [Suspect]
     Dosage: 4 MG/5 ML ONCE PER 28 DAYS
     Dates: start: 20110509
  11. BUMETANIDE [Concomitant]
     Dosage: 1 MG, QD

REACTIONS (10)
  - NEOPLASM PROGRESSION [None]
  - MOBILITY DECREASED [None]
  - CACHEXIA [None]
  - FATIGUE [None]
  - TERMINAL STATE [None]
  - BONE PAIN [None]
  - WEIGHT DECREASED [None]
  - NEOPLASM MALIGNANT [None]
  - ASTHENIA [None]
  - SLEEP DISORDER [None]
